FAERS Safety Report 6919584-4 (Version None)
Quarter: 2010Q3

REPORT INFORMATION
  Report Type: 
  Country: None (occurrence: None)
  Receive Date: 20100809
  Receipt Date: 20100728
  Transmission Date: 20110219
  Serious: Yes (Other)
  Sender: FDA-Public Use
  Company Number: 2010EU003082

PATIENT
  Age: 5 Year
  Sex: Male
  Weight: 23 kg

DRUGS (2)
  1. VESIKUR (SOLIFENACIN) TABLET, 5MG [Suspect]
     Indication: BLADDER DYSFUNCTION
     Dosage: 5 MG, UID/QD, ORAL
     Route: 048
     Dates: start: 20100501, end: 20100601
  2. NIFURETTEN (NITROFURANTOIN) [Concomitant]

REACTIONS (4)
  - CONJUNCTIVITIS [None]
  - EYE DISORDER [None]
  - NO THERAPEUTIC RESPONSE [None]
  - OFF LABEL USE [None]
